FAERS Safety Report 10691398 (Version 1)
Quarter: 2015Q1

REPORT INFORMATION
  Report Type: Report from Study
  Country: CO (occurrence: CO)
  Receive Date: 20150105
  Receipt Date: 20150105
  Transmission Date: 20150720
  Serious: Yes (Death)
  Sender: FDA-Public Use
  Company Number: US-ASTRAZENECA-2015SE00037

PATIENT
  Age: 62 Day
  Sex: Male
  Weight: 3 kg

DRUGS (1)
  1. SYNAGIS [Suspect]
     Active Substance: PALIVIZUMAB
     Indication: PREMATURE BABY
     Route: 030
     Dates: start: 20141123, end: 20141123

REACTIONS (1)
  - Death [Fatal]

NARRATIVE: CASE EVENT DATE: 20141217
